FAERS Safety Report 6888250-6 (Version None)
Quarter: 2010Q3

REPORT INFORMATION
  Report Type: 
  Country: None (occurrence: None)
  Receive Date: 20100730
  Receipt Date: 20100722
  Transmission Date: 20110219
  Serious: Yes (Death)
  Sender: FDA-Public Use
  Company Number: GXKR2010GB08203

PATIENT
  Age: 37 Year
  Sex: Male

DRUGS (3)
  1. METHADONE (NGX) [Suspect]
     Route: 065
  2. MORPHINE (NGX) [Suspect]
     Route: 065
  3. DIAZEPAM (NGX) [Suspect]

REACTIONS (1)
  - DRUG TOXICITY [None]
